FAERS Safety Report 8305619-3 (Version None)
Quarter: 2012Q2

REPORT INFORMATION
  Report Type: 
  Country: None (occurrence: None)
  Receive Date: 20120418
  Receipt Date: 20120409
  Transmission Date: 20120825
  Serious: Yes (Other)
  Sender: FDA-Public Use
  Company Number: 2012MA004736

PATIENT
  Age: 78 Year
  Sex: Male

DRUGS (1)
  1. CARBIDOPA AND LEVODOPA [Suspect]
     Indication: PARKINSON'S DISEASE
     Dosage: 100 MG;TID

REACTIONS (12)
  - IRRITABILITY [None]
  - RESPIRATORY DISORDER [None]
  - BRADYKINESIA [None]
  - MUSCLE RIGIDITY [None]
  - DYSPHONIA [None]
  - PARKINSONISM [None]
  - RENAL IMPAIRMENT [None]
  - CEREBRAL ATROPHY [None]
  - CONFUSIONAL STATE [None]
  - HALLUCINATION, VISUAL [None]
  - LEUKOENCEPHALOPATHY [None]
  - AGITATION [None]
